FAERS Safety Report 8428819 (Version 3)
Quarter: 2013Q2

REPORT INFORMATION
  Report Type: Report from Study
  Country: AU (occurrence: AU)
  Receive Date: 20120227
  Receipt Date: 20130613
  Transmission Date: 20140414
  Serious: Yes (Other)
  Sender: FDA-Public Use
  Company Number: AU-ROCHE-1043214

PATIENT
  Age: 81 Year
  Sex: Female

DRUGS (1)
  1. LUCENTIS [Suspect]
     Indication: AGE-RELATED MACULAR DEGENERATION
     Route: 050
     Dates: start: 201110

REACTIONS (4)
  - Ulcer [Recovering/Resolving]
  - Cyst [Recovering/Resolving]
  - Metamorphopsia [Not Recovered/Not Resolved]
  - Night blindness [Unknown]
